FAERS Safety Report 15803446 (Version 1)
Quarter: 2019Q1

REPORT INFORMATION
  Report Type: Spontaneous
  Country: JP (occurrence: JP)
  Receive Date: 20190109
  Receipt Date: 20190109
  Transmission Date: 20190417
  Serious: Yes (Life-Threatening)
  Sender: FDA-Public Use
  Company Number: JP-BIOCRYST PHARMACEUTICALS, INC.-2018BCR00287

PATIENT
  Age: 6 Year
  Sex: Male
  Weight: 20 kg

DRUGS (3)
  1. VICCILLIN [Suspect]
     Active Substance: AMPICILLIN
     Indication: PNEUMONIA BACTERIAL
     Dosage: 66.7 MG/KG
     Dates: start: 20181222, end: 20181222
  2. RAPIACTA [Suspect]
     Active Substance: PERAMIVIR
     Indication: INFLUENZA
     Dosage: 15 MG/KG
     Route: 042
     Dates: start: 20181222, end: 20181222
  3. CALONAL [Suspect]
     Active Substance: ACETAMINOPHEN
     Indication: PYREXIA
     Dosage: 200 MG
     Dates: start: 20181222, end: 20181222

REACTIONS (1)
  - Anaphylactic reaction [Recovered/Resolved]

NARRATIVE: CASE EVENT DATE: 20181222
